FAERS Safety Report 9236964 (Version 2)
Quarter: 2013Q2

REPORT INFORMATION
  Report Type: Spontaneous
  Country: US (occurrence: US)
  Receive Date: 20130417
  Receipt Date: 20130424
  Transmission Date: 20140414
  Serious: Yes (Hospitalization, Other)
  Sender: FDA-Public Use
  Company Number: US-AMGEN-USASP2013026172

PATIENT
  Age: 55 Year
  Sex: Male

DRUGS (1)
  1. ENBREL [Suspect]
     Indication: RHEUMATOID ARTHRITIS
     Dosage: 50 MG, QWK
     Dates: start: 20120308

REACTIONS (7)
  - Skull fracture [Unknown]
  - Facial bones fracture [Unknown]
  - Road traffic accident [Recovered/Resolved]
  - Fracture [Unknown]
  - Eyeball avulsion [Unknown]
  - Spinal fracture [Unknown]
  - Upper limb fracture [Unknown]
